FAERS Safety Report 22337670 (Version 1)
Quarter: 2023Q2

REPORT INFORMATION
  Report Type: Spontaneous
  Country: US (occurrence: None)
  Receive Date: 20230517
  Receipt Date: 20230517
  Transmission Date: 20230721
  Serious: Yes (Disabling, Other)
  Sender: FDA-Public Use
  Company Number: None

PATIENT
  Age: 58 Year
  Sex: Female
  Weight: 33.75 kg

DRUGS (8)
  1. PRASUGREL [Suspect]
     Active Substance: PRASUGREL
     Indication: Anticoagulant therapy
     Route: 048
     Dates: start: 20220705, end: 20230502
  2. PRASUGREL [Suspect]
     Active Substance: PRASUGREL
     Indication: Myocardial infarction
  3. TYLENOL [Concomitant]
     Active Substance: ACETAMINOPHEN
  4. PREDNISONE [Concomitant]
     Active Substance: PREDNISONE
  5. Fametodine [Concomitant]
  6. VITAMIN B12 [Suspect]
     Active Substance: CYANOCOBALAMIN
  7. MILK OF MAGNESIUM [Concomitant]
  8. Colace Lactaid [Concomitant]

REACTIONS (3)
  - Oesophageal spasm [None]
  - Weight decreased [None]
  - Eating disorder [None]

NARRATIVE: CASE EVENT DATE: 20220812
